FAERS Safety Report 10076603 (Version 1)
Quarter: 2014Q2

REPORT INFORMATION
  Report Type: Report from Study
  Country: US (occurrence: US)
  Receive Date: 20140414
  Receipt Date: 20140414
  Transmission Date: 20141212
  Serious: Yes (Death)
  Sender: FDA-Public Use
  Company Number: PHEH2014US007244

PATIENT
  Age: 66 Year
  Sex: Female

DRUGS (1)
  1. GLEEVEC [Suspect]
     Indication: LYMPHOCYTIC LEUKAEMIA
     Dosage: 400 MG, QD
     Route: 048
     Dates: start: 20140303

REACTIONS (1)
  - Death [Fatal]
